FAERS Safety Report 18483411 (Version 1)
Quarter: 2020Q4

REPORT INFORMATION
  Report Type: Spontaneous
  Country: US (occurrence: US)
  Receive Date: 20201109
  Receipt Date: 20201109
  Transmission Date: 20210114
  Serious: No
  Sender: FDA-Public Use
  Company Number: US-ROCHE-2589816

PATIENT
  Age: 20 Year
  Sex: Male

DRUGS (2)
  1. PULMOZYME [Suspect]
     Active Substance: DORNASE ALFA
     Indication: PRODUCT USED FOR UNKNOWN INDICATION
     Dosage: 100/50/75 MG
     Route: 048
  2. TRIKAFTA [Concomitant]
     Active Substance: ELEXACAFTOR\IVACAFTOR\TEZACAFTOR

REACTIONS (3)
  - Constipation [Unknown]
  - Acne [Unknown]
  - Rash [Unknown]

NARRATIVE: CASE EVENT DATE: 20191101
